FAERS Safety Report 4349476-9 (Version None)
Quarter: 2004Q2

REPORT INFORMATION
  Report Type: 
  Country: None (occurrence: None)
  Receive Date: 20040426
  Receipt Date: 20040415
  Transmission Date: 20050107
  Serious: No
  Sender: FDA-Public Use
  Company Number: 04P-056-0255801-00

PATIENT
  Age: 46 Year
  Sex: Male

DRUGS (1)
  1. DEPAKENE [Suspect]
     Indication: EPILEPSY
     Dosage: 1000 MG 1 IN 1 D ORAL
     Route: 048
     Dates: start: 19800101

REACTIONS (2)
  - DISEASE RECURRENCE [None]
  - DUPUYTREN'S CONTRACTURE [None]
